FAERS Safety Report 12628667 (Version 1)
Quarter: 2016Q3

REPORT INFORMATION
  Report Type: Spontaneous
  Country: US (occurrence: US)
  Receive Date: 20160808
  Receipt Date: 20160808
  Transmission Date: 20161109
  Serious: No
  Sender: FDA-Public Use
  Company Number: US-JAZZ-2016-US-004455

PATIENT
  Sex: Female

DRUGS (38)
  1. XYREM [Suspect]
     Active Substance: SODIUM OXYBATE
     Indication: CATAPLEXY
     Dosage: 3 G, BID
     Route: 048
     Dates: start: 201210, end: 201211
  2. EPIPEN [Concomitant]
     Active Substance: EPINEPHRINE
  3. VITAMIN B COMPLEX [Concomitant]
     Active Substance: CYANOCOBALAMIN\DEXPANTHENOL\NIACINAMIDE\PYRIDOXINE HYDROCHLORIDE\RIBOFLAVIN 5^-PHOSPHATE SODIUM\THIAMINE HYDROCHLORIDE\VITAMIN B COMPLEX
  4. ZOVIRAX [Concomitant]
     Active Substance: ACYCLOVIR
  5. CRYSELLE [Concomitant]
     Active Substance: ETHINYL ESTRADIOL\NORGESTREL
  6. WELLBUTRIN SR [Concomitant]
     Active Substance: BUPROPION HYDROCHLORIDE
  7. XYREM [Suspect]
     Active Substance: SODIUM OXYBATE
     Dosage: 4.5 G, BID
     Route: 048
     Dates: start: 201211
  8. PROVIGIL [Suspect]
     Active Substance: MODAFINIL
     Indication: PRODUCT USED FOR UNKNOWN INDICATION
     Dosage: UNKNOWN DOSE
  9. MELATONIN [Concomitant]
     Active Substance: MELATONIN
  10. ZOFRAN [Concomitant]
     Active Substance: ONDANSETRON HYDROCHLORIDE
  11. XYREM [Suspect]
     Active Substance: SODIUM OXYBATE
     Indication: NARCOLEPSY
     Dosage: 2.25 G, BID
     Route: 048
     Dates: start: 201209, end: 201210
  12. LEVALBUTEROL. [Concomitant]
     Active Substance: LEVALBUTEROL
  13. FLUTICASONE PROPRIONATE [Concomitant]
     Active Substance: FLUTICASONE PROPIONATE
  14. BIOFREEZE [Concomitant]
     Active Substance: MENTHOL
  15. IBUPROFEN. [Concomitant]
     Active Substance: IBUPROFEN
  16. TRAZODONE [Concomitant]
     Active Substance: TRAZODONE HYDROCHLORIDE
  17. SOMA [Concomitant]
     Active Substance: CARISOPRODOL
  18. ZOFRAN ODT [Concomitant]
     Active Substance: ONDANSETRON HYDROCHLORIDE
  19. ZOFRAN [Concomitant]
     Active Substance: ONDANSETRON HYDROCHLORIDE
  20. VALTREX [Concomitant]
     Active Substance: VALACYCLOVIR HYDROCHLORIDE
  21. MUPIROCIN. [Concomitant]
     Active Substance: MUPIROCIN
  22. TRAMADOL HCL [Concomitant]
     Active Substance: TRAMADOL HYDROCHLORIDE
  23. LUNESTA [Concomitant]
     Active Substance: ESZOPICLONE
  24. NASACORT AQ [Concomitant]
     Active Substance: TRIAMCINOLONE ACETONIDE
  25. NUVIGIL [Concomitant]
     Active Substance: ARMODAFINIL
  26. XOPENEX HFA [Concomitant]
     Active Substance: LEVALBUTEROL TARTRATE
  27. KLONOPIN [Concomitant]
     Active Substance: CLONAZEPAM
  28. MULTIVITAMINS [Concomitant]
     Active Substance: VITAMINS
  29. PATANASE [Concomitant]
     Active Substance: OLOPATADINE HYDROCHLORIDE
  30. LEVALBUTEROL HCL [Concomitant]
     Active Substance: LEVALBUTEROL HYDROCHLORIDE
  31. DITROPAN [Concomitant]
     Active Substance: OXYBUTYNIN CHLORIDE
  32. PAXIL [Concomitant]
     Active Substance: PAROXETINE HYDROCHLORIDE
  33. ACETAMINOPHEN. [Concomitant]
     Active Substance: ACETAMINOPHEN
  34. VOLTAREN [Concomitant]
     Active Substance: DICLOFENAC SODIUM
  35. XOPENEX [Concomitant]
     Active Substance: LEVALBUTEROL HYDROCHLORIDE
  36. MIRALAX [Concomitant]
     Active Substance: POLYETHYLENE GLYCOL 3350
  37. SYMBICORT [Concomitant]
     Active Substance: BUDESONIDE\FORMOTEROL FUMARATE DIHYDRATE
  38. REMERON [Concomitant]
     Active Substance: MIRTAZAPINE

REACTIONS (2)
  - Abdominal discomfort [Unknown]
  - Headache [Unknown]
